FAERS Safety Report 21590679 (Version 1)
Quarter: 2022Q4

REPORT INFORMATION
  Report Type: Spontaneous
  Country: KR (occurrence: KR)
  Receive Date: 20221114
  Receipt Date: 20221114
  Transmission Date: 20230113
  Serious: Yes (Other)
  Sender: FDA-Public Use
  Company Number: KR-GLAXOSMITHKLINE-KR2020APC043857

PATIENT

DRUGS (2)
  1. LAMICTAL [Suspect]
     Active Substance: LAMOTRIGINE
     Indication: Muscle spasms
     Dosage: UNK
     Route: 048
  2. LAMICTAL [Suspect]
     Active Substance: LAMOTRIGINE
     Indication: Petit mal epilepsy

REACTIONS (9)
  - Oculogyric crisis [Unknown]
  - Visual impairment [Unknown]
  - Abnormal sensation in eye [Unknown]
  - Muscle spasms [Unknown]
  - Dyspepsia [Unknown]
  - Salivary hypersecretion [Unknown]
  - Foaming at mouth [Unknown]
  - Eye movement disorder [Unknown]
  - Wrong technique in product usage process [Unknown]
